FAERS Safety Report 11700448 (Version 1)
Quarter: 2015Q4

REPORT INFORMATION
  Report Type: Spontaneous
  Country: US (occurrence: None)
  Receive Date: 20151104
  Receipt Date: 20151104
  Transmission Date: 20160304
  Serious: No
  Sender: FDA-Public Use
  Company Number: None

PATIENT
  Age: 37 Year
  Sex: Female
  Weight: 59.88 kg

DRUGS (4)
  1. VELAFAXINE HCL ER 75MG ZYDUS [Suspect]
     Active Substance: VENLAFAXINE HYDROCHLORIDE
     Indication: ANXIETY
     Dosage: 1 PILL DAILY, WITH 37.5MG PILL
     Route: 048
  2. VELAFAXINE HCL ER 75MG ZYDUS [Suspect]
     Active Substance: VENLAFAXINE HYDROCHLORIDE
     Indication: DEPRESSION
     Dosage: 1 PILL DAILY, WITH 37.5MG PILL
     Route: 048
  3. MAGNESIUM [Concomitant]
     Active Substance: MAGNESIUM
  4. BUSPIRONE [Concomitant]
     Active Substance: BUSPIRONE HYDROCHLORIDE

REACTIONS (7)
  - Paraesthesia [None]
  - Product substitution issue [None]
  - Drug withdrawal syndrome [None]
  - Nausea [None]
  - Visual impairment [None]
  - Dizziness [None]
  - Anxiety [None]

NARRATIVE: CASE EVENT DATE: 20151015
